FAERS Safety Report 17143542 (Version 1)
Quarter: 2019Q4

REPORT INFORMATION
  Report Type: Spontaneous
  Country: US (occurrence: US)
  Receive Date: 20191211
  Receipt Date: 20191211
  Transmission Date: 20200122
  Serious: Yes (Hospitalization)
  Sender: FDA-Public Use
  Company Number: US-AMERICAN REGENT INC-20191528

PATIENT
  Age: 62 Year
  Sex: Male
  Weight: 82.4 kg

DRUGS (3)
  1. METHOXY POLYETHYLENE GLYCOL-EPOETIN BETA. [Suspect]
     Active Substance: METHOXY POLYETHYLENE GLYCOL-EPOETIN BETA
     Indication: PRODUCT USED FOR UNKNOWN INDICATION
     Dosage: UNKNOWN
     Route: 065
  2. METHOXY POLYETHYLENE GLYCOL-EPOETIN BETA. [Suspect]
     Active Substance: METHOXY POLYETHYLENE GLYCOL-EPOETIN BETA
     Dosage: 75MG
     Route: 065
     Dates: start: 20180406, end: 20180413
  3. VENOFER [Suspect]
     Active Substance: IRON SUCROSE
     Indication: PRODUCT USED FOR UNKNOWN INDICATION
     Dosage: UNKNOWN
     Route: 042

REACTIONS (3)
  - Drug hypersensitivity [Recovered/Resolved]
  - Fluid overload [Unknown]
  - Hospitalisation [Unknown]

NARRATIVE: CASE EVENT DATE: 20180413
